FAERS Safety Report 6418108-8 (Version None)
Quarter: 2009Q4

REPORT INFORMATION
  Report Type: 
  Country: None (occurrence: None)
  Receive Date: 20091028
  Receipt Date: 20091023
  Transmission Date: 20100525
  Serious: Yes (Life-Threatening, Hospitalization, Other)
  Sender: FDA-Public Use
  Company Number: US-PFIZER INC-2009255701

PATIENT
  Sex: Male

DRUGS (1)
  1. EXUBERA [Suspect]
     Indication: DIABETES MELLITUS
     Dosage: UNK
     Route: 055

REACTIONS (1)
  - ANAPHYLACTIC SHOCK [None]
